FAERS Safety Report 11010664 (Version 1)
Quarter: 2015Q2

REPORT INFORMATION
  Report Type: Spontaneous
  Country: US (occurrence: US)
  Receive Date: 20150410
  Receipt Date: 20150410
  Transmission Date: 20150821
  Serious: Yes (Death, Other)
  Sender: FDA-Public Use
  Company Number: US-ASTRAZENECA-2015SE31657

PATIENT
  Age: 808 Month
  Sex: Male
  Weight: 70.8 kg

DRUGS (14)
  1. BYETTA [Suspect]
     Active Substance: EXENATIDE
     Route: 058
     Dates: start: 20060420
  2. PRAVASTATIN [Concomitant]
     Active Substance: PRAVASTATIN\PRAVASTATIN SODIUM
     Dates: start: 20070523
  3. DURAGESIC [Concomitant]
     Active Substance: FENTANYL
     Dates: start: 20070515
  4. INSULIN [Concomitant]
     Active Substance: INSULIN NOS
     Dates: start: 20060616
  5. METOPROLOL [Concomitant]
     Active Substance: METOPROLOL
     Route: 048
  6. GEMCITABINE [Concomitant]
     Active Substance: GEMCITABINE\GEMCITABINE HYDROCHLORIDE
  7. METFORMIN [Concomitant]
     Active Substance: METFORMIN HYDROCHLORIDE
     Dates: start: 20070314
  8. ALLOPURINOL. [Concomitant]
     Active Substance: ALLOPURINOL
     Dates: start: 20070525
  9. OXALIPLATIN. [Concomitant]
     Active Substance: OXALIPLATIN
  10. BYETTA [Suspect]
     Active Substance: EXENATIDE
     Route: 058
     Dates: start: 20060511
  11. TYLENOL [Concomitant]
     Active Substance: ACETAMINOPHEN
     Dates: start: 20070523
  12. ALTACE [Concomitant]
     Active Substance: RAMIPRIL
     Route: 048
     Dates: start: 20070525
  13. DURAGESIC [Concomitant]
     Active Substance: FENTANYL
     Dates: start: 20070517
  14. DURAGESIC [Concomitant]
     Active Substance: FENTANYL
     Dates: start: 20070823

REACTIONS (3)
  - Pancreatic carcinoma metastatic [Fatal]
  - Cardiopulmonary failure [Fatal]
  - Pancytopenia [Fatal]

NARRATIVE: CASE EVENT DATE: 200704
